FAERS Safety Report 4372553-3 (Version None)
Quarter: 2004Q2

REPORT INFORMATION
  Report Type: 
  Country: None (occurrence: None)
  Receive Date: 20040603
  Receipt Date: 20040510
  Transmission Date: 20050107
  Serious: Yes (Hospitalization)
  Sender: FDA-Public Use
  Company Number: D01200401660

PATIENT
  Age: 52 Year

DRUGS (1)
  1. CISPLATIN [Suspect]
     Indication: CARCINOMA
     Dosage: 100 MG/M2  OTHER - INTRAVENOUS NOS
     Route: 042
     Dates: start: 20030626, end: 20030626

REACTIONS (1)
  - IMPLANT SITE HAEMORRHAGE [None]
